FAERS Safety Report 8898723 (Version 1)
Quarter: 2012Q4

REPORT INFORMATION
  Report Type: 
  Country: IN (occurrence: US)
  Receive Date: 20121109
  Receipt Date: 20121109
  Transmission Date: 20130627
  Serious: No
  Sender: FDA-Public Use
  Company Number: US-BAYER-2012-117733

PATIENT
  Age: 51 Year
  Sex: Female

DRUGS (1)
  1. CLIMARA [Suspect]
     Indication: HOT FLASHES
     Dosage: UNK
     Route: 062
     Dates: start: 20121104

REACTIONS (2)
  - Product adhesion issue [None]
  - Drug ineffective [Not Recovered/Not Resolved]
